FAERS Safety Report 11108422 (Version 1)
Quarter: 2015Q2

REPORT INFORMATION
  Report Type: Spontaneous
  Country: SE (occurrence: SE)
  Receive Date: 20150513
  Receipt Date: 20150513
  Transmission Date: 20150821
  Serious: Yes (Life-Threatening, Hospitalization)
  Sender: FDA-Public Use
  Company Number: SE-JNJFOC-20150504645

PATIENT
  Age: 64 Year
  Sex: Male

DRUGS (10)
  1. IPREN [Suspect]
     Active Substance: IBUPROFEN
     Route: 048
  2. TROMBYL [Concomitant]
     Active Substance: ASPIRIN
     Dosage: FILM COATED TABLET
     Route: 065
  3. CRESTOR [Concomitant]
     Active Substance: ROSUVASTATIN CALCIUM
     Route: 065
  4. IPREN [Suspect]
     Active Substance: IBUPROFEN
     Indication: INFLUENZA
     Route: 048
     Dates: start: 20150405, end: 20150415
  5. INSPRA [Concomitant]
     Active Substance: EPLERENONE
     Route: 065
  6. GLYCERYL TRINITRATE [Concomitant]
     Active Substance: NITROGLYCERIN
     Dosage: SUBLINGUAL SPRAY
     Route: 065
  7. BISOPROLOL [Concomitant]
     Active Substance: BISOPROLOL
     Route: 065
  8. SYMBICORT [Concomitant]
     Active Substance: BUDESONIDE\FORMOTEROL FUMARATE DIHYDRATE
     Dosage: INHALATIONSPULVER
     Route: 065
  9. SPIRIVA [Concomitant]
     Active Substance: TIOTROPIUM BROMIDE MONOHYDRATE
     Dosage: INHALATION POWDER, HARD CAPSULE
     Route: 065
  10. ENALAPRIL/HCTZ [Concomitant]
     Active Substance: ENALAPRIL\HYDROCHLOROTHIAZIDE
     Route: 065

REACTIONS (2)
  - Myocardial infarction [Unknown]
  - In-stent arterial stenosis [Unknown]

NARRATIVE: CASE EVENT DATE: 20150415
